FAERS Safety Report 4452139-2 (Version None)
Quarter: 2004Q3

REPORT INFORMATION
  Report Type: 
  Country: None (occurrence: None)
  Receive Date: 20040915
  Receipt Date: 20040915
  Transmission Date: 20050211
  Serious: Yes (Hospitalization)
  Sender: FDA-Public Use
  Company Number: None

PATIENT
  Age: 15 Year
  Sex: Female
  Weight: 39.9 kg

DRUGS (2)
  1. METHOTREXATE [Suspect]
     Indication: LYMPHOMA
     Dosage: 12 MG INTRATRACHEA
     Route: 039
     Dates: start: 20040723, end: 20040723
  2. VINCRISTINE [Suspect]
     Indication: LYMPHOMA
     Dosage: 2 MG INTRAVENOUS
     Route: 042
     Dates: start: 20040123, end: 20040723

REACTIONS (15)
  - ABDOMINAL PAIN [None]
  - ASPERGILLOSIS [None]
  - BACTERIAL INFECTION [None]
  - BLOOD CULTURE POSITIVE [None]
  - CYTOMEGALOVIRUS INFECTION [None]
  - DEPRESSED LEVEL OF CONSCIOUSNESS [None]
  - FUNGAL INFECTION [None]
  - HAEMOPTYSIS [None]
  - HEADACHE [None]
  - NAUSEA [None]
  - PANCYTOPENIA [None]
  - PNEUMONIA [None]
  - PYREXIA [None]
  - RESPIRATORY DISTRESS [None]
  - VOMITING [None]
